FAERS Safety Report 11883970 (Version 2)
Quarter: 2016Q1

REPORT INFORMATION
  Report Type: Spontaneous
  Country: US (occurrence: US)
  Receive Date: 20160102
  Receipt Date: 20160104
  Transmission Date: 20160526
  Serious: Yes (Hospitalization, Other)
  Sender: FDA-Public Use
  Company Number: US-ZYDUS-009848

PATIENT
  Age: 61 Year
  Sex: Male

DRUGS (3)
  1. ATENOLOL. [Suspect]
     Active Substance: ATENOLOL
     Indication: PRODUCT USED FOR UNKNOWN INDICATION
     Dosage: 500 MG
     Route: 065
  2. AMLODIPINE [Suspect]
     Active Substance: AMLODIPINE BESYLATE
     Indication: PRODUCT USED FOR UNKNOWN INDICATION
     Dosage: 200 MG
     Route: 065
  3. VALSARTAN. [Suspect]
     Active Substance: VALSARTAN
     Indication: PRODUCT USED FOR UNKNOWN INDICATION
     Dosage: 375 MG
     Route: 065

REACTIONS (10)
  - Mental status changes [Unknown]
  - Shock [Recovering/Resolving]
  - Continuous haemodiafiltration [None]
  - Renal failure [Unknown]
  - Pulmonary oedema [Unknown]
  - Lethargy [Unknown]
  - Cardiotoxicity [Unknown]
  - Lactic acidosis [Unknown]
  - Toxicity to various agents [Unknown]
  - Overdose [Unknown]
